FAERS Safety Report 25012135 (Version 1)
Quarter: 2025Q1

REPORT INFORMATION
  Report Type: Spontaneous
  Country: JP (occurrence: JP)
  Receive Date: 20250226
  Receipt Date: 20250226
  Transmission Date: 20250409
  Serious: Yes (Other)
  Sender: BAXTER
  Company Number: JP-BAXTER-2023BAX030443AA

PATIENT
  Age: 8 Decade
  Sex: Female
  Weight: 53 kg

DRUGS (8)
  1. SUPRANE [Suspect]
     Active Substance: DESFLURANE
     Indication: Maintenance of anaesthesia
     Route: 065
  2. PROPOFOL [Concomitant]
     Active Substance: PROPOFOL
     Indication: Induction of anaesthesia
     Route: 065
  3. REMIFENTANIL [Concomitant]
     Active Substance: REMIFENTANIL
     Indication: Induction of anaesthesia
     Route: 065
  4. REMIFENTANIL [Concomitant]
     Active Substance: REMIFENTANIL
     Indication: Maintenance of anaesthesia
  5. FENTANYL [Concomitant]
     Active Substance: FENTANYL
     Indication: Induction of anaesthesia
     Route: 065
  6. FENTANYL [Concomitant]
     Active Substance: FENTANYL
     Indication: Maintenance of anaesthesia
  7. ROCURONIUM [Concomitant]
     Active Substance: ROCURONIUM BROMIDE
     Indication: Induction of anaesthesia
     Route: 065
  8. ROCURONIUM [Concomitant]
     Active Substance: ROCURONIUM BROMIDE
     Indication: Maintenance of anaesthesia

REACTIONS (4)
  - Epilepsy [Recovered/Resolved]
  - Altered state of consciousness [Recovered/Resolved]
  - Dysarthria [Recovered/Resolved]
  - Apraxia [Recovered/Resolved]
